FAERS Safety Report 13167495 (Version 1)
Quarter: 2017Q1

REPORT INFORMATION
  Report Type: Spontaneous
  Country: US (occurrence: US)
  Receive Date: 20170131
  Receipt Date: 20170131
  Transmission Date: 20170428
  Serious: Yes (Hospitalization)
  Sender: FDA-Public Use
  Company Number: None

PATIENT
  Age: 47 Year
  Sex: Male
  Weight: 108.3 kg

DRUGS (1)
  1. DOCETAXEL 10 MG/ML 8 ML VIAL SANDOZ [Suspect]
     Active Substance: DOCETAXEL
     Route: 042
     Dates: start: 20170104

REACTIONS (3)
  - Infusion related reaction [None]
  - Flushing [None]
  - Chest discomfort [None]

NARRATIVE: CASE EVENT DATE: 20170104
